FAERS Safety Report 21996876 (Version 2)
Quarter: 2023Q1

REPORT INFORMATION
  Report Type: Report from Study
  Country: US (occurrence: US)
  Receive Date: 20230215
  Receipt Date: 20230301
  Transmission Date: 20230418
  Serious: Yes (Death, Other)
  Sender: FDA-Public Use
  Company Number: US-BAUSCH-BL-2023-002355

PATIENT
  Age: 67 Year
  Sex: Male

DRUGS (1)
  1. XIFAXAN [Suspect]
     Active Substance: RIFAXIMIN
     Indication: Hepatic encephalopathy
     Route: 065
     Dates: start: 202204, end: 20230124

REACTIONS (4)
  - Cardiac arrest [Fatal]
  - Complications of transplant surgery [Fatal]
  - Hepatic encephalopathy [Unknown]
  - Liver transplant [Unknown]

NARRATIVE: CASE EVENT DATE: 20230125
